FAERS Safety Report 20046940 (Version 4)
Quarter: 2023Q1

REPORT INFORMATION
  Report Type: Report from Study
  Country: US (occurrence: US)
  Receive Date: 20211109
  Receipt Date: 20230102
  Transmission Date: 20230418
  Serious: No
  Sender: FDA-Public Use
  Company Number: US-NOVARTISTESTPH-NVSC2021US253692

PATIENT
  Sex: Female

DRUGS (1)
  1. PROMACTA [Suspect]
     Active Substance: ELTROMBOPAG OLAMINE
     Indication: Anaemia
     Dosage: 75 MG, BID
     Route: 048

REACTIONS (3)
  - Tremor [Unknown]
  - Nervousness [Unknown]
  - Product availability issue [Unknown]
